FAERS Safety Report 7408612-8 (Version None)
Quarter: 2011Q2

REPORT INFORMATION
  Report Type: 
  Country: None (occurrence: None)
  Receive Date: 20110412
  Receipt Date: 20110329
  Transmission Date: 20111010
  Serious: Yes (Hospitalization)
  Sender: FDA-Public Use
  Company Number: PHHY2011FR24834

PATIENT
  Age: 60 Year
  Sex: Male

DRUGS (3)
  1. RASILEZ HCT [Interacting]
     Dosage: 300/25 MG
     Dates: start: 20101101
  2. VERAPAMIL [Interacting]
     Dosage: 240 MG, UNK
     Dates: start: 20101101
  3. RASILEZ HCT [Suspect]
     Dosage: 300/12.5 MG
     Dates: start: 20100901

REACTIONS (6)
  - NAUSEA [None]
  - FATIGUE [None]
  - HYPOTENSION [None]
  - DRUG INTERACTION [None]
  - ARRHYTHMIA [None]
  - ATRIAL FIBRILLATION [None]
